FAERS Safety Report 8791116 (Version 1)
Quarter: 2012Q4

REPORT INFORMATION
  Report Type: Spontaneous
  Country: US (occurrence: None)
  Receive Date: 20120913
  Receipt Date: 20120913
  Transmission Date: 20130627
  Serious: Yes (Other)
  Sender: FDA-Public Use
  Company Number: None

PATIENT
  Sex: Female
  Weight: 51.71 kg

DRUGS (1)
  1. NUVARING [Suspect]
     Indication: BIRTH CONTROL
     Dosage: 1 ring insert once a mont vag
     Route: 067
     Dates: start: 20030301, end: 20100601

REACTIONS (4)
  - Infertility female [None]
  - Cystitis [None]
  - Vaginitis bacterial [None]
  - Pelvic inflammatory disease [None]
